FAERS Safety Report 23767152 (Version 2)
Quarter: 2024Q3

REPORT INFORMATION
  Report Type: Spontaneous
  Country: US (occurrence: US)
  Receive Date: 20240422
  Receipt Date: 20240724
  Transmission Date: 20241017
  Serious: No
  Sender: BRISTOL MYERS SQUIBB
  Company Number: US-BRISTOL-MYERS SQUIBB COMPANY-2024-062359

PATIENT
  Age: 77 Year
  Sex: Male
  Weight: 74.39 kg

DRUGS (2)
  1. LENALIDOMIDE [Suspect]
     Active Substance: LENALIDOMIDE
     Indication: Plasma cell myeloma
     Route: 048
     Dates: start: 20240214
  2. LENALIDOMIDE [Suspect]
     Active Substance: LENALIDOMIDE
     Route: 048
     Dates: start: 20201005

REACTIONS (4)
  - Laboratory test abnormal [Unknown]
  - Muscle spasms [Unknown]
  - Hyperhidrosis [Unknown]
  - Fatigue [Unknown]
